FAERS Safety Report 8996248 (Version 4)
Quarter: 2013Q2

REPORT INFORMATION
  Report Type: Spontaneous
  Country: US (occurrence: US)
  Receive Date: 20130103
  Receipt Date: 20130621
  Transmission Date: 20140414
  Serious: Yes (Hospitalization)
  Sender: FDA-Public Use
  Company Number: US-GILEAD-2013-0067244

PATIENT
  Sex: Female

DRUGS (2)
  1. LETAIRIS [Suspect]
     Indication: PULMONARY ARTERIAL HYPERTENSION
     Dosage: 5 MG, QD
     Route: 048
     Dates: start: 20121215
  2. LETAIRIS [Suspect]
     Indication: COLLAGEN-VASCULAR DISEASE

REACTIONS (3)
  - Hypoxia [Unknown]
  - Oxygen saturation decreased [Not Recovered/Not Resolved]
  - Unevaluable event [Recovered/Resolved]
